FAERS Safety Report 16235604 (Version 1)
Quarter: 2019Q2

REPORT INFORMATION
  Report Type: Spontaneous
  Country: US (occurrence: US)
  Receive Date: 20190424
  Receipt Date: 20190424
  Transmission Date: 20190711
  Serious: Yes (Other)
  Sender: FDA-Public Use
  Company Number: US-ELI_LILLY_AND_COMPANY-US201904008157

PATIENT
  Sex: Male

DRUGS (1)
  1. ZYPREXA [Suspect]
     Active Substance: OLANZAPINE
     Indication: AGITATION
     Dosage: 5 MG, UNKNOWN
     Route: 030
     Dates: start: 201904

REACTIONS (6)
  - Coma [Unknown]
  - Hallucination [Unknown]
  - Somnolence [Unknown]
  - Hypokinesia [Unknown]
  - Incoherent [Unknown]
  - Moaning [Unknown]

NARRATIVE: CASE EVENT DATE: 201904
